FAERS Safety Report 7629700-7 (Version None)
Quarter: 2011Q3

REPORT INFORMATION
  Report Type: 
  Country: None (occurrence: None)
  Receive Date: 20110722
  Receipt Date: 20110707
  Transmission Date: 20111222
  Serious: Yes (Other)
  Sender: FDA-Public Use
  Company Number: GB-WATSON-2011-10693

PATIENT
  Age: 61 Year
  Sex: Female

DRUGS (5)
  1. TACROLIMUS [Suspect]
     Indication: RENAL TRANSPLANT
     Route: 065
  2. PREDNISOLONE [Suspect]
     Dosage: UNK
     Route: 065
  3. CYCLOSPORINE [Suspect]
     Indication: RENAL TRANSPLANT
     Dosage: UNK
     Route: 065
  4. MYCOPHENOLATE MEFETIL [Suspect]
     Indication: RENAL TRANSPLANT
     Dosage: 2 G, DAILY
     Route: 065
     Dates: start: 20090601
  5. MYCOPHENOLATE MEFETIL [Suspect]
     Dosage: 2 G, DAILY
     Route: 065
     Dates: start: 20050201

REACTIONS (2)
  - BRONCHIECTASIS [None]
  - HYPERGAMMAGLOBULINAEMIA [None]
